FAERS Safety Report 10066649 (Version 1)
Quarter: 2014Q2

REPORT INFORMATION
  Report Type: Spontaneous
  Country: US (occurrence: None)
  Receive Date: 20140401
  Receipt Date: 20140401
  Transmission Date: 20141212
  Serious: Yes (Hospitalization)
  Sender: FDA-Public Use
  Company Number: PHEH2013US005011

PATIENT
  Sex: 0

DRUGS (1)
  1. EXELON PATCH ( RIVASTIGMINE) TRANS-THERAPEUTIC-SYSTEM [Suspect]
     Route: 062

REACTIONS (2)
  - Nausea [None]
  - Vomiting [None]
